FAERS Safety Report 13753538 (Version 1)
Quarter: 2017Q3

REPORT INFORMATION
  Report Type: Other
  Country: FR (occurrence: FR)
  Receive Date: 20170714
  Receipt Date: 20170714
  Transmission Date: 20171127
  Serious: Yes (Hospitalization)
  Sender: FDA-Public Use
  Company Number: FR-HIKMA PHARMACEUTICALS CO. LTD-2017FR009074

PATIENT

DRUGS (4)
  1. REMSIMA [Suspect]
     Active Substance: INFLIXIMAB
     Dosage: 1 DOSAGE FORM ALL 8 WEEKS; CYCLIC
     Route: 042
  2. REMSIMA [Suspect]
     Active Substance: INFLIXIMAB
     Indication: CROHN^S DISEASE
     Dosage: 1 DOSAGE FORM ALL 8 WEEKS; CYCLIC
     Route: 042
     Dates: start: 20170108, end: 20170108
  3. REMSIMA [Suspect]
     Active Substance: INFLIXIMAB
     Dosage: 1 DOSAGE FORM ALL 8 WEEKS; CYCLIC
     Route: 042
     Dates: start: 201706, end: 201706
  4. REMSIMA [Suspect]
     Active Substance: INFLIXIMAB
     Dosage: 1 DOSAGE FORM ALL 8 WEEKS; CYCLIC
     Route: 042

REACTIONS (5)
  - Muscular weakness [Recovered/Resolved]
  - Hypoaesthesia [Recovered/Resolved]
  - Headache [Recovered/Resolved]
  - Diplopia [Recovered/Resolved]
  - Paraesthesia [Recovered/Resolved]

NARRATIVE: CASE EVENT DATE: 201706
